FAERS Safety Report 17016871 (Version 3)
Quarter: 2019Q4

REPORT INFORMATION
  Report Type: Spontaneous
  Country: US (occurrence: US)
  Receive Date: 20191111
  Receipt Date: 20191130
  Transmission Date: 20200122
  Serious: Yes (Other)
  Sender: FDA-Public Use
  Company Number: US-AMGEN-USASP2019184252

PATIENT
  Age: 76 Year
  Sex: Male
  Weight: 101.59 kg

DRUGS (10)
  1. HYDRALAZINE [Concomitant]
     Active Substance: HYDRALAZINE HYDROCHLORIDE
     Dosage: 50 MILLIGRAM, BID
  2. LISINOPRIL. [Concomitant]
     Active Substance: LISINOPRIL
     Dosage: 40 MILLIGRAM, QD
     Route: 048
  3. FISH OIL [Concomitant]
     Active Substance: FISH OIL
     Dosage: 1200 MILLIGRAM
     Route: 048
  4. REPATHA [Suspect]
     Active Substance: EVOLOCUMAB
     Indication: PRODUCT USED FOR UNKNOWN INDICATION
     Dosage: 420 MILLIGRAM, QMO
     Route: 058
  5. LIZINOPRIL [Concomitant]
     Dosage: 40 MILLIGRAM, QD
  6. HYDRALAZINE [Concomitant]
     Active Substance: HYDRALAZINE HYDROCHLORIDE
     Dosage: 50 MILLIGRAM, TID
     Route: 048
  7. ECOTRIN [Concomitant]
     Active Substance: ASPIRIN
     Dosage: 325 MILLIGRAM
     Route: 048
  8. METOPROLOL. [Concomitant]
     Active Substance: METOPROLOL
     Dosage: 50 MILLIGRAM, QD
     Route: 048
  9. VITAMINE C [Concomitant]
     Active Substance: ASCORBIC ACID
     Dosage: 1000 MILLIGRAM
     Route: 048
  10. VITAMIN D3 [Concomitant]
     Active Substance: CHOLECALCIFEROL
     Dosage: 10000UNIT ORAL CAPSULE 250 MCG (10000 UT)
     Route: 048

REACTIONS (9)
  - Gait disturbance [Unknown]
  - Fatigue [Unknown]
  - Pain in extremity [Unknown]
  - Arthralgia [Unknown]
  - Asthenia [Unknown]
  - Myalgia [Unknown]
  - Weight increased [Unknown]
  - Back pain [Unknown]
  - Cataract [Unknown]
